FAERS Safety Report 5806964-3 (Version None)
Quarter: 2008Q3

REPORT INFORMATION
  Report Type: 
  Country: None (occurrence: None)
  Receive Date: 20080708
  Receipt Date: 20080624
  Transmission Date: 20090109
  Serious: Yes (Death)
  Sender: FDA-Public Use
  Company Number: 2008AL007741

PATIENT
  Age: 50 Year
  Sex: Male

DRUGS (7)
  1. DIAZEPAM [Suspect]
  2. OXYCODONE HCL [Suspect]
  3. PAREGORIC LIQUID USP (ALPHARMA) (PAREGORIC LIQUID USP (ALPHARMA)) [Suspect]
  4. COCAINE [Concomitant]
  5. LAMOTRIGINE [Concomitant]
  6. TOPIRAMATE [Concomitant]
  7. AMITRIPTYLINE HCL [Concomitant]

REACTIONS (2)
  - DRUG ABUSE [None]
  - MULTIPLE DRUG OVERDOSE [None]
